FAERS Safety Report 15852860 (Version 1)
Quarter: 2019Q1

REPORT INFORMATION
  Report Type: Spontaneous
  Country: US (occurrence: US)
  Receive Date: 20190122
  Receipt Date: 20190122
  Transmission Date: 20190417
  Serious: Yes (Hospitalization)
  Sender: FDA-Public Use
  Company Number: PHHY2019US008039

PATIENT
  Age: 9 Year
  Sex: Female

DRUGS (3)
  1. ZOLEDRONATE [Suspect]
     Active Substance: ZOLEDRONIC ACID
     Indication: OSTEOSARCOMA METASTATIC
     Dosage: UNK
     Route: 065
  2. SORAFENIB [Suspect]
     Active Substance: SORAFENIB
     Indication: OSTEOSARCOMA METASTATIC
     Dosage: UNK
     Route: 065
  3. EVEROLIMUS. [Suspect]
     Active Substance: EVEROLIMUS
     Indication: OSTEOSARCOMA METASTATIC
     Dosage: UNK
     Route: 065

REACTIONS (6)
  - Product use in unapproved indication [Unknown]
  - Malignant neoplasm progression [Unknown]
  - Pneumothorax [Unknown]
  - Metastases to lung [Unknown]
  - Osteosarcoma metastatic [Unknown]
  - Respiratory distress [Recovering/Resolving]
